FAERS Safety Report 6095743-0 (Version None)
Quarter: 2009Q1

REPORT INFORMATION
  Report Type: 
  Country: None (occurrence: None)
  Receive Date: 20090227
  Receipt Date: 20080606
  Transmission Date: 20090719
  Serious: No
  Sender: FDA-Public Use
  Company Number: A0731751A

PATIENT
  Age: 52 Year
  Sex: Female

DRUGS (3)
  1. LAMICTAL [Suspect]
     Dosage: 375MG PER DAY
     Route: 048
     Dates: start: 20080201
  2. WELLBUTRIN SR [Concomitant]
  3. LEVOXYL [Concomitant]

REACTIONS (6)
  - DRUG ADMINISTRATION ERROR [None]
  - ECZEMA [None]
  - LOCAL SWELLING [None]
  - OVERDOSE [None]
  - PRURITUS [None]
  - RASH [None]
